FAERS Safety Report 15089422 (Version 1)
Quarter: 2018Q2

REPORT INFORMATION
  Report Type: Report from Study
  Country: None (occurrence: TR)
  Receive Date: 20180629
  Receipt Date: 20180629
  Transmission Date: 20180711
  Serious: Yes (Hospitalization)
  Sender: FDA-Public Use
  Company Number: TR-ABBVIE-18K-161-2304594-00

PATIENT
  Sex: Female
  Weight: 55 kg

DRUGS (14)
  1. DUODOPA [Suspect]
     Active Substance: CARBIDOPA\LEVODOPA
     Dosage: MORNING DOSE: 7 ML, CONTINUOUS DOSE:  3.50 ML.
     Route: 050
     Dates: start: 20180407
  2. LIORESAL [Concomitant]
     Active Substance: BACLOFEN
     Indication: PARKINSON^S DISEASE
     Route: 050
  3. SELECTRA [Concomitant]
     Indication: PARKINSON^S DISEASE
     Route: 050
  4. DUODOPA [Suspect]
     Active Substance: CARBIDOPA\LEVODOPA
     Dosage: MORNING DOSE: 09.00 ML; CONTINUOUS DOSE: 4.10 ML; EXTRA DOSE: 2.00 ML
     Route: 050
     Dates: start: 201803, end: 201803
  5. GLUCOPHAGE [Concomitant]
     Active Substance: METFORMIN HYDROCHLORIDE
     Indication: DIABETES MELLITUS
     Route: 050
  6. GLUCERNA [Concomitant]
     Active Substance: AMINO ACIDS\DEXTROSE\ELECTROLYTES NOS\SOYBEAN OIL\VITAMINS
     Indication: MALNUTRITION
     Dosage: 3X2
     Route: 050
  7. DUODOPA [Suspect]
     Active Substance: CARBIDOPA\LEVODOPA
     Indication: PARKINSON^S DISEASE
     Dosage: MORNING DOSE: 0.00 ML; CONTINUOUS DOSE .3.20 ML; EXTRA DOSE: 2.00ML
     Route: 050
     Dates: start: 20170807
  8. DUODOPA [Suspect]
     Active Substance: CARBIDOPA\LEVODOPA
     Dosage: MORNING DOSE: 10.00 ML; CONTINUOUS DOSE: 4.30 ML; EXTRA DOSE: 2.00 ML
     Route: 050
     Dates: start: 201803, end: 20180401
  9. DUODOPA [Suspect]
     Active Substance: CARBIDOPA\LEVODOPA
     Dosage: MORNING DOSE: 12.00 ML CONTINUOUS DOSE: 5.20 ML EXTRA DOSE: 2.00 ML
     Route: 050
     Dates: start: 20180401, end: 20180404
  10. VASOCARD [Concomitant]
     Active Substance: AMLODIPINE BESYLATE
     Indication: PRODUCT USED FOR UNKNOWN INDICATION
     Route: 050
  11. DUODOPA [Suspect]
     Active Substance: CARBIDOPA\LEVODOPA
     Dosage: MORNING DOSE: 8.00 ML; CONTINUOUS DOSE: 3.40 ML
     Route: 050
     Dates: start: 201803, end: 201803
  12. FAMODIN [Concomitant]
     Active Substance: FAMOTIDINE
     Indication: PROPHYLAXIS
     Route: 050
  13. DUODOPA [Suspect]
     Active Substance: CARBIDOPA\LEVODOPA
     Dosage: MORNING DOSE: 9.00 ML; CONTINUOUS DOSE: 3.60 ML; EXTRA DOSE: 2.00 ML
     Route: 050
     Dates: start: 201803, end: 201803
  14. MOTIS [Concomitant]
     Indication: PARKINSON^S DISEASE
     Route: 050

REACTIONS (3)
  - Dystonia [Not Recovered/Not Resolved]
  - Bradykinesia [Not Recovered/Not Resolved]
  - Intentional product use issue [Unknown]
